FAERS Safety Report 21931640 (Version 1)
Quarter: 2023Q1

REPORT INFORMATION
  Report Type: Spontaneous
  Country: IE (occurrence: None)
  Receive Date: 20230130
  Receipt Date: 20230130
  Transmission Date: 20230417
  Serious: Yes (Hospitalization, Disabling)
  Sender: FDA-Public Use
  Company Number: None

PATIENT
  Age: 17 Year
  Sex: Male
  Weight: 70 kg

DRUGS (3)
  1. ISOTRETINOIN [Suspect]
     Active Substance: ISOTRETINOIN
     Indication: Acne
     Dates: start: 20211130, end: 20220615
  2. HUMIRA [Concomitant]
     Active Substance: ADALIMUMAB
  3. VITAMINS [Concomitant]
     Active Substance: VITAMINS

REACTIONS (7)
  - Movement disorder [None]
  - Inflammation [None]
  - Gait disturbance [None]
  - Hypokinesia [None]
  - Loss of personal independence in daily activities [None]
  - Costochondritis [None]
  - SAPHO syndrome [None]

NARRATIVE: CASE EVENT DATE: 20220414
